FAERS Safety Report 9621054 (Version 3)
Quarter: 2013Q4

REPORT INFORMATION
  Report Type: Report from Study
  Country: JP (occurrence: JP)
  Receive Date: 20131015
  Receipt Date: 20131022
  Transmission Date: 20140711
  Serious: Yes (Hospitalization)
  Sender: FDA-Public Use
  Company Number: JP-EISAI INC-E2007-01351-CLI-JP

PATIENT
  Age: 30 Year
  Sex: Female
  Weight: 35.3 kg

DRUGS (5)
  1. E2007 (PERAMPANEL) [Suspect]
     Indication: PARTIAL SEIZURES
     Dosage: CORE STUDY-DOUBLE BLIND
     Route: 048
     Dates: start: 20130206, end: 20130721
  2. E2007 (PERAMPANEL) [Suspect]
     Dosage: EXTENSION PHASE- CONVERSION PERIOD
     Route: 048
     Dates: start: 20130722, end: 20130825
  3. E2007 (PERAMPANEL) [Suspect]
     Route: 048
     Dates: start: 20130826
  4. TEGRETOL [Suspect]
     Indication: EPILEPSY
     Route: 048
     Dates: start: 20120829, end: 20131010
  5. E KEPPRA [Concomitant]
     Indication: EPILEPSY
     Route: 048
     Dates: start: 20120627

REACTIONS (1)
  - Sick sinus syndrome [Recovering/Resolving]
